FAERS Safety Report 4269583-9 (Version None)
Quarter: 2004Q1

REPORT INFORMATION
  Report Type: 
  Country: None (occurrence: None)
  Receive Date: 20040113
  Receipt Date: 20040106
  Transmission Date: 20041129
  Serious: Yes (Other)
  Sender: FDA-Public Use
  Company Number: US-BRISTOL-MYERS SQUIBB COMPANY-12476586

PATIENT
  Age: 83 Year
  Sex: Female

DRUGS (1)
  1. ENKAID [Suspect]
     Indication: ARRHYTHMIA
     Route: 048
     Dates: end: 20010910

REACTIONS (1)
  - CEREBROVASCULAR ACCIDENT [None]
